FAERS Safety Report 6419357-5 (Version None)
Quarter: 2009Q4

REPORT INFORMATION
  Report Type: 
  Country: None (occurrence: None)
  Receive Date: 20091029
  Receipt Date: 20091022
  Transmission Date: 20100525
  Serious: Yes (Other)
  Sender: FDA-Public Use
  Company Number: FR-BAYER-200935236GPV

PATIENT
  Age: 39 Year
  Sex: Male
  Weight: 70 kg

DRUGS (18)
  1. KOGENATE [Suspect]
     Indication: FACTOR VIII INHIBITION
     Route: 042
     Dates: start: 20071120, end: 20071122
  2. KOGENATE [Suspect]
     Dosage: CONTINUOUS INFUSION
     Route: 042
     Dates: start: 20071123, end: 20071123
  3. KOGENATE [Suspect]
     Dosage: CONTINUOUS INFUSION
     Route: 042
     Dates: start: 20071123, end: 20071127
  4. KOGENATE [Suspect]
     Dosage: CONTINUOUS INFUSION
     Route: 042
     Dates: start: 20071128, end: 20071201
  5. KOGENATE [Suspect]
     Dosage: CONTINUOUS INFUSION
     Route: 042
     Dates: start: 20071202, end: 20071204
  6. KOGENATE [Suspect]
     Dosage: TOTAL DAILY DOSE: 14000 IU
     Route: 042
     Dates: start: 20071204, end: 20071211
  7. KOGENATE [Suspect]
     Route: 042
     Dates: start: 20071212, end: 20080320
  8. KOGENATE [Suspect]
     Route: 042
     Dates: start: 20080329, end: 20080409
  9. KOGENATE [Suspect]
     Route: 042
     Dates: start: 20080501, end: 20080529
  10. KOGENATE [Suspect]
     Route: 042
     Dates: start: 20080530, end: 20080731
  11. KOGENATE [Suspect]
     Route: 042
     Dates: start: 20080731, end: 20081127
  12. KOGENATE [Suspect]
     Dosage: FROM 20000 IU TO 7000 IU DECREASE REGIMEN SURGERY PERIOD
     Route: 042
     Dates: start: 20081202, end: 20081224
  13. KOGENATE [Suspect]
     Route: 042
     Dates: start: 20081227, end: 20090223
  14. KOGENATE [Suspect]
     Route: 042
     Dates: start: 20090223, end: 20090519
  15. HELIXATE [Suspect]
     Indication: IMMUNE SYSTEM DISORDER
     Dosage: CONTINUOUS INFUSION
     Route: 042
     Dates: start: 20071124, end: 20071127
  16. HELIXATE [Suspect]
     Dosage: CONTINUOUS INFUSION
     Route: 042
     Dates: start: 20071128, end: 20071201
  17. HELIXATE [Suspect]
     Route: 042
     Dates: start: 20080731, end: 20081127
  18. HELIXATE [Suspect]
     Dosage: 20000 IU TO 7000 IU DECREASE REGIMEN SURGERY PERIOD
     Route: 042
     Dates: start: 20081202, end: 20081224

REACTIONS (1)
  - VENOUS THROMBOSIS LIMB [None]
